FAERS Safety Report 10066067 (Version 2)
Quarter: 2014Q2

REPORT INFORMATION
  Report Type: Spontaneous
  Country: US (occurrence: US)
  Receive Date: 20140408
  Receipt Date: 20140408
  Transmission Date: 20141212
  Serious: Yes (Hospitalization, Disabling, Other)
  Sender: FDA-Public Use
  Company Number: US-009507513-1205USA01101

PATIENT
  Sex: Female
  Weight: 56.69 kg

DRUGS (4)
  1. FOSAMAX [Suspect]
     Indication: OSTEOPOROSIS
     Dosage: 70 MG, UNK
     Route: 048
     Dates: start: 2000, end: 200706
  2. FOSAMAX PLUS D [Suspect]
     Indication: OSTEOPOROSIS
     Dosage: 70 MG/2800 IU, UNK
     Route: 048
     Dates: start: 20070608, end: 201001
  3. VITAMINS (UNSPECIFIED) [Concomitant]
     Dosage: 1 DF, QD
     Dates: start: 2000
  4. CALCIUM (UNSPECIFIED) [Concomitant]
     Dosage: 1 DF, QD
     Dates: start: 2000

REACTIONS (14)
  - Femur fracture [Not Recovered/Not Resolved]
  - Intramedullary rod insertion [Unknown]
  - Haemoglobin decreased [Recovering/Resolving]
  - Stress fracture [Not Recovered/Not Resolved]
  - Low turnover osteopathy [Not Recovered/Not Resolved]
  - Osteoporosis [Not Recovered/Not Resolved]
  - Tooth loss [Unknown]
  - Hypertension [Unknown]
  - Blood cholesterol increased [Unknown]
  - Osteoarthritis [Unknown]
  - Osteopenia [Unknown]
  - Chondrocalcinosis [Unknown]
  - Limb injury [Unknown]
  - Iron deficiency anaemia [Unknown]
